FAERS Safety Report 7819959-5 (Version None)
Quarter: 2011Q4

REPORT INFORMATION
  Report Type: 
  Country: None (occurrence: None)
  Receive Date: 20111018
  Receipt Date: 20110208
  Transmission Date: 20120403
  Serious: No
  Sender: FDA-Public Use
  Company Number: US-ASTRAZENECA-2011SE07880

PATIENT
  Age: 73 Year
  Sex: Male

DRUGS (1)
  1. SYMBICORT [Suspect]
     Dosage: 160/4.5 MCG BID
     Route: 055

REACTIONS (1)
  - HEPATITIS C [None]
